FAERS Safety Report 20641385 (Version 2)
Quarter: 2022Q2

REPORT INFORMATION
  Report Type: Spontaneous
  Country: US (occurrence: US)
  Receive Date: 20220328
  Receipt Date: 20220401
  Transmission Date: 20220720
  Serious: Yes (Other)
  Sender: FDA-Public Use
  Company Number: US-AUROBINDO-AUR-APL-2022-009800

PATIENT
  Age: 70 Year
  Sex: Male

DRUGS (3)
  1. MOXIFLOXACIN [Suspect]
     Active Substance: MOXIFLOXACIN
     Indication: Antibiotic therapy
     Dosage: UNK, SINCE FOUR WEEKS
     Route: 061
  2. PREDNISOLONE ACETATE [Suspect]
     Active Substance: PREDNISOLONE ACETATE
     Indication: Stevens-Johnson syndrome
     Dosage: UNK
     Route: 061
  3. PREDNISOLONE ACETATE [Suspect]
     Active Substance: PREDNISOLONE ACETATE
     Indication: Toxic epidermal necrolysis

REACTIONS (2)
  - Corynebacterium infection [Unknown]
  - Keratitis [Unknown]
